FAERS Safety Report 23937375 (Version 2)
Quarter: 2024Q3

REPORT INFORMATION
  Report Type: Report from Study
  Country: US (occurrence: US)
  Receive Date: 20240604
  Receipt Date: 20240730
  Transmission Date: 20241017
  Serious: Yes (Other)
  Sender: ABBVIE
  Company Number: US-ABBVIE-5785680

PATIENT
  Sex: Female

DRUGS (1)
  1. RINVOQ [Suspect]
     Active Substance: UPADACITINIB
     Indication: Rheumatoid arthritis
     Dosage: TIME INTERVAL: 0.33333333 WEEKS
     Route: 048
     Dates: start: 20231004, end: 2024

REACTIONS (3)
  - Hip arthroplasty [Unknown]
  - Weight bearing difficulty [Unknown]
  - Kidney infection [Unknown]

NARRATIVE: CASE EVENT DATE: 20240101
